FAERS Safety Report 15930138 (Version 2)
Quarter: 2019Q1

REPORT INFORMATION
  Report Type: Spontaneous
  Country: DE (occurrence: DE)
  Receive Date: 20190206
  Receipt Date: 20190225
  Transmission Date: 20190417
  Serious: Yes (Other)
  Sender: FDA-Public Use
  Company Number: DE-AUROBINDO-AUR-APL-2019-005986

PATIENT

DRUGS (2)
  1. VOLTAREN [Concomitant]
     Active Substance: DICLOFENAC SODIUM
     Indication: PAIN
     Dosage: UNKNOWN
     Route: 065
  2. METFORMIN [Suspect]
     Active Substance: METFORMIN HYDROCHLORIDE
     Indication: DIABETES MELLITUS
     Dosage: UNKNOWN
     Route: 065

REACTIONS (12)
  - Vision blurred [Not Recovered/Not Resolved]
  - Heart rate increased [Unknown]
  - Abdominal pain [Unknown]
  - Muscle spasms [Unknown]
  - Cold sweat [Unknown]
  - Tremor [Not Recovered/Not Resolved]
  - Depressed level of consciousness [Unknown]
  - Weight decreased [Not Recovered/Not Resolved]
  - Chest pain [Unknown]
  - Dizziness [Unknown]
  - Restlessness [Unknown]
  - Dry mouth [Unknown]
